FAERS Safety Report 8716130 (Version 2)
Quarter: 2012Q4

REPORT INFORMATION
  Report Type: 
  Country: US (occurrence: US)
  Receive Date: 20120809
  Receipt Date: 20121212
  Transmission Date: 20130627
  Serious: No
  Sender: FDA-Public Use
  Company Number: US-RB-043076-12

PATIENT
  Age: 28 Year
  Sex: Female

DRUGS (7)
  1. SUBOXONE TABLET [Suspect]
     Route: 060
     Dates: start: 200908, end: 201003
  2. SUBOXONE TABLET [Suspect]
     Indication: DRUG DEPENDENCE
     Dosage: 1 1/2 tablets daily
     Route: 060
     Dates: start: 201003, end: 201007
  3. SUBOXONE TABLET [Suspect]
     Dosage: 1/2 tablet irregularly
     Route: 060
     Dates: start: 201008, end: 201010
  4. SUBOXONE TABLET [Suspect]
     Dosage: 1/4 tablet twice a day
     Route: 060
     Dates: start: 201010, end: 201012
  5. SUBOXONE FILM [Suspect]
     Indication: DRUG DEPENDENCE
     Dosage: Suboxone film
     Route: 060
     Dates: start: 201012, end: 201103
  6. SUBOXONE FILM [Suspect]
     Dosage: Suboxone film; 1 1/2 strips daily
     Route: 060
     Dates: start: 201103
  7. ZYRTEC [Concomitant]
     Indication: HYPERSENSITIVITY
     Dosage: Dosing details unknown
     Route: 065

REACTIONS (10)
  - Vomiting [Recovered/Resolved]
  - Tremor [Recovered/Resolved]
  - Dysphagia [Recovered/Resolved]
  - Dry throat [Recovered/Resolved]
  - Decreased appetite [Recovered/Resolved]
  - Asthenia [Recovered/Resolved]
  - Withdrawal syndrome [Recovered/Resolved]
  - Tunnel vision [Recovered/Resolved]
  - Weight decreased [Recovered/Resolved]
  - Wrong technique in drug usage process [Not Recovered/Not Resolved]
